FAERS Safety Report 13033242 (Version 3)
Quarter: 2017Q1

REPORT INFORMATION
  Report Type: Spontaneous
  Country: FR (occurrence: FR)
  Receive Date: 20161216
  Receipt Date: 20170206
  Transmission Date: 20170428
  Serious: Yes (Other)
  Sender: FDA-Public Use
  Company Number: FR-ROCHE-1867735

PATIENT
  Age: 87 Year
  Sex: Female

DRUGS (2)
  1. HERCEPTIN [Suspect]
     Active Substance: TRASTUZUMAB
     Indication: BREAST CANCER
     Dosage: LAST CYCLE (CYCLE 20): 07/DEC/2016
     Route: 042
     Dates: start: 20151030, end: 20161207
  2. PERJETA [Suspect]
     Active Substance: PERTUZUMAB
     Indication: BREAST CANCER
     Dosage: LAST CYCLE (CYCLE 20): 07/DEC/2016
     Route: 042
     Dates: start: 20151030, end: 20161207

REACTIONS (2)
  - Vitiligo [Not Recovered/Not Resolved]
  - Autoantibody positive [Unknown]

NARRATIVE: CASE EVENT DATE: 201609
